FAERS Safety Report 7088845-3 (Version None)
Quarter: 2010Q4

REPORT INFORMATION
  Report Type: 
  Country: None (occurrence: None)
  Receive Date: 20101108
  Receipt Date: 20101026
  Transmission Date: 20110411
  Serious: Yes (Hospitalization)
  Sender: FDA-Public Use
  Company Number: NL-MEDIMMUNE-MEDI-0011700

PATIENT
  Sex: Male
  Weight: 3.5 kg

DRUGS (2)
  1. SYNAGIS [Suspect]
     Route: 051
     Dates: start: 20101001, end: 20101001
  2. SYNAGIS [Suspect]
     Route: 051
     Dates: start: 20101026, end: 20101026

REACTIONS (3)
  - NASOPHARYNGITIS [None]
  - RESPIRATORY SYNCYTIAL VIRUS TEST POSITIVE [None]
  - SENSE OF OPPRESSION [None]
